FAERS Safety Report 18747668 (Version 1)
Quarter: 2021Q1

REPORT INFORMATION
  Report Type: Spontaneous
  Country: US (occurrence: US)
  Receive Date: 20210115
  Receipt Date: 20210115
  Transmission Date: 20210419
  Serious: Yes (Hospitalization, Other)
  Sender: FDA-Public Use
  Company Number: US-DENTSPLY-2021SCDP000016

PATIENT
  Age: 66 Year
  Sex: Male

DRUGS (1)
  1. ISOPROPYL ALCOHOL. [Suspect]
     Active Substance: ISOPROPYL ALCOHOL
     Indication: ALCOHOL ABUSE
     Dosage: UNK

REACTIONS (5)
  - Somnolence [Recovered/Resolved]
  - Toxicity to various agents [Recovered/Resolved]
  - Drug abuse [Recovered/Resolved]
  - Osmolar gap increased [Recovered/Resolved]
  - Mental status changes [Recovered/Resolved]
